FAERS Safety Report 7158724-1 (Version None)
Quarter: 2010Q4

REPORT INFORMATION
  Report Type: 
  Country: None (occurrence: None)
  Receive Date: 20101201
  Receipt Date: 20101118
  Transmission Date: 20110411
  Serious: Yes (Hospitalization)
  Sender: FDA-Public Use
  Company Number: UTC-002481

PATIENT
  Age: 15 Year
  Sex: Male
  Weight: 55.3 kg

DRUGS (4)
  1. REMODULIN [Suspect]
     Indication: PULMONARY HYPERTENSION
     Dosage: 259.2 UG/KG (0.18 UG/KG, 1 IN 1 MIN), INTRAVENOUS
     Route: 042
     Dates: start: 20060509
  2. DIURETICS (DIURETICS) [Concomitant]
  3. LETAIRIS (AMBRISENTAN) [Concomitant]
  4. DIGOXIN [Concomitant]

REACTIONS (2)
  - EPISTAXIS [None]
  - HAEMOPTYSIS [None]
